FAERS Safety Report 7794228-0 (Version None)
Quarter: 2011Q4

REPORT INFORMATION
  Report Type: 
  Country: None (occurrence: None)
  Receive Date: 20111004
  Receipt Date: 20110920
  Transmission Date: 20120403
  Serious: Yes (Hospitalization, Other)
  Sender: FDA-Public Use
  Company Number: AU-CELGENEUS-008-21880-10110724

PATIENT
  Sex: Female
  Weight: 71 kg

DRUGS (7)
  1. ZOMETA [Concomitant]
     Dosage: 4 MILLIGRAM
     Route: 041
  2. OXYCONTIN [Concomitant]
     Indication: PAIN
     Dosage: 20 MILLIGRAM
     Route: 048
     Dates: start: 20090601
  3. OSTELIN [Concomitant]
     Dosage: 1000 IU (INTERNATIONAL UNIT)
     Route: 048
     Dates: start: 20100818
  4. CALCIUM CARBONATE [Concomitant]
     Dosage: 3600 MILLIGRAM
     Route: 048
     Dates: start: 20100818
  5. DEXAMETHASONE [Concomitant]
     Indication: MULTIPLE MYELOMA
     Route: 065
     Dates: start: 20100611
  6. ESOMEPRAZOLE SODIUM [Concomitant]
     Dosage: 40 MILLIGRAM
     Route: 048
  7. REVLIMID [Suspect]
     Indication: MULTIPLE MYELOMA
     Dosage: 25 MILLIGRAM
     Route: 048
     Dates: start: 20090611, end: 20100909

REACTIONS (3)
  - PAIN [None]
  - HERPES ZOSTER [None]
  - AUTOIMMUNE PANCYTOPENIA [None]
